FAERS Safety Report 6582854-6 (Version None)
Quarter: 2010Q1

REPORT INFORMATION
  Report Type: 
  Country: None (occurrence: None)
  Receive Date: 20100216
  Receipt Date: 20100204
  Transmission Date: 20100710
  Serious: Yes (Other)
  Sender: FDA-Public Use
  Company Number: JP-PFIZER INC-2010017233

PATIENT
  Age: 60 Year
  Sex: Male
  Weight: 65 kg

DRUGS (4)
  1. CHAMPIX [Suspect]
     Dosage: 0.5 MG, 1X/DAY
     Route: 048
     Dates: start: 20091003
  2. CHAMPIX [Suspect]
     Dosage: 1 MG A DAY
     Dates: start: 20091006
  3. CHAMPIX [Suspect]
     Dosage: 2 MG A DAY
     Dates: start: 20091010, end: 20091109
  4. NORVASC [Concomitant]
     Indication: HYPERTENSION
     Dosage: UNK
     Route: 048

REACTIONS (2)
  - ERYTHEMA [None]
  - TOXIC SKIN ERUPTION [None]
